FAERS Safety Report 20955057 (Version 2)
Quarter: 2022Q3

REPORT INFORMATION
  Report Type: Spontaneous
  Country: DK (occurrence: DK)
  Receive Date: 20220614
  Receipt Date: 20220701
  Transmission Date: 20221026
  Serious: Yes (Hospitalization)
  Sender: FDA-Public Use
  Company Number: DK-Accord-264983

PATIENT
  Age: 3 Decade
  Sex: Male

DRUGS (6)
  1. TACROLIMUS [Interacting]
     Active Substance: TACROLIMUS
     Indication: Product used for unknown indication
     Dosage: INCREASE TO 60 MG DAILY
     Route: 048
     Dates: start: 2020, end: 2020
  2. RIFAMPIN [Interacting]
     Active Substance: RIFAMPIN
     Indication: Cat scratch disease
     Dosage: TWO TIMES PER DAY ON SUSPICION OF CSD
     Route: 048
     Dates: start: 2020, end: 2020
  3. MORPHINE [Interacting]
     Active Substance: MORPHINE
     Indication: Musculoskeletal pain
     Dosage: 20 MG/DAY TO A MAXIMUM OF 167.5 MG DAILY
     Route: 042
     Dates: start: 2020, end: 2020
  4. DOXYCYCLINE [Concomitant]
     Active Substance: DOXYCYCLINE
     Indication: Cat scratch disease
     Dosage: TWO TIMES PER DAY ON SUSPICION OF CSD
     Dates: start: 2020
  5. AZITHROMYCIN [Concomitant]
     Active Substance: AZITHROMYCIN
     Indication: Cat scratch disease
     Dosage: 500 MG DAILY
  6. MORPHINE [Interacting]
     Active Substance: MORPHINE
     Indication: Musculoskeletal pain
     Dosage: 20 MG/DAY TO A MAXIMUM OF 167.5 MG DAILY
     Route: 048
     Dates: start: 2020, end: 2020

REACTIONS (4)
  - Drug interaction [Unknown]
  - Rash [Recovered/Resolved]
  - Drug level decreased [Recovered/Resolved]
  - Inadequate analgesia [Recovered/Resolved]

NARRATIVE: CASE EVENT DATE: 20200101
